FAERS Safety Report 18160218 (Version 1)
Quarter: 2020Q3

REPORT INFORMATION
  Report Type: Spontaneous
  Country: GB (occurrence: GB)
  Receive Date: 20200817
  Receipt Date: 20200817
  Transmission Date: 20201103
  Serious: Yes (Death, Other)
  Sender: FDA-Public Use
  Company Number: GB-AMGEN-GBRSP2020127609

PATIENT

DRUGS (2)
  1. PARACETAMOL [Concomitant]
     Active Substance: ACETAMINOPHEN
     Indication: ANALGESIC THERAPY
  2. XGEVA [Suspect]
     Active Substance: DENOSUMAB
     Indication: PROPHYLAXIS
     Dosage: UNK
     Route: 065

REACTIONS (6)
  - Pathological fracture [Unknown]
  - Hypercalcaemia [Unknown]
  - Death [Fatal]
  - Bone disorder [Unknown]
  - Metastases to spinal cord [Unknown]
  - Pain [Unknown]
